FAERS Safety Report 9250607 (Version 1)
Quarter: 2013Q1

REPORT INFORMATION
  Report Type: Spontaneous
  Country: US (occurrence: None)
  Receive Date: 20130305
  Receipt Date: 20130305
  Transmission Date: 20140127
  Serious: Yes (Other)
  Sender: FDA-Public Use
  Company Number: 163-21880-12063212

PATIENT
  Age: 69 Year
  Sex: Male
  Weight: 78.02 kg

DRUGS (15)
  1. REVLIMID [Suspect]
     Indication: PLASMA CELL MYELOMA
     Route: 048
     Dates: start: 20100227
  2. ONDANSETRON (ONDANSETRON) [Concomitant]
  3. CHOLECALCIFEROL (CHOLECALCIFEROL) [Concomitant]
  4. VITAMINS [Concomitant]
  5. IMMUNE GLOBULIN (IMMUNOGLOBULIN) [Concomitant]
  6. CLARITHROMYCIN (CLARITHROMYCIN) [Concomitant]
  7. ASPIRIN (ACETYLSALICYLIC ACID) [Concomitant]
  8. ALCLOMETASONE (ALCLOMETASONE) [Concomitant]
  9. METOCLOPRAMIDE (METOCLOPRAMIDE) [Concomitant]
  10. BACLOFEN (BACLOFEN) [Concomitant]
  11. AMLODIPINE (AMLODIPINE) [Concomitant]
  12. CARVEDILOL (CARVEDILOL) [Concomitant]
  13. HYDROCHLOROTHIAZIDE (HYDROCHLOROTHIAZIDE) [Concomitant]
  14. ACETAMINOPHEN W/HYDROCODONE (PROCET (USA) [Concomitant]
  15. VELCADE (BORTEZOMIB) [Concomitant]

REACTIONS (4)
  - Thrombocytopenia [None]
  - Asthenia [None]
  - Full blood count decreased [None]
  - Blood creatinine increased [None]
